FAERS Safety Report 9097962 (Version 1)
Quarter: 2013Q1

REPORT INFORMATION
  Report Type: Spontaneous
  Country: FR (occurrence: FR)
  Receive Date: 20130212
  Receipt Date: 20130212
  Transmission Date: 20140127
  Serious: Yes (Hospitalization)
  Sender: FDA-Public Use
  Company Number: FR-JNJFOC-20120513390

PATIENT
  Age: 32 Year
  Sex: Female

DRUGS (2)
  1. INTELENCE [Suspect]
     Indication: HIV INFECTION
     Route: 048
     Dates: start: 20111220, end: 20120413
  2. TRUVADA [Concomitant]
     Indication: HIV INFECTION
     Route: 048
     Dates: start: 20121220

REACTIONS (2)
  - Headache [Recovered/Resolved]
  - Inappropriate schedule of drug administration [Unknown]
